FAERS Safety Report 9501207 (Version 1)
Quarter: 2013Q1

REPORT INFORMATION
  Report Type: Spontaneous
  Country: US (occurrence: None)
  Receive Date: 20130118
  Receipt Date: 20130118
  Transmission Date: 20140127
  Serious: Yes (Hospitalization)
  Sender: FDA-Public Use
  Company Number: A-NJ2012-59854

PATIENT
  Age: 85 Year
  Sex: Female

DRUGS (8)
  1. TRACLEER (BOSENTAN) TABLET [Suspect]
     Indication: PULMONARY ARTERIAL HYPERTENSION
     Route: 048
     Dates: start: 20111122, end: 201201
  2. COUMADIN (WARFARIN SODIUM) [Concomitant]
  3. COREG (CARVEDILOL) [Concomitant]
  4. LASIX (FUROSEMIDE) [Concomitant]
  5. LEXAPRO (ESCITALOPRAM OXALATE) [Concomitant]
  6. FOSAMAX (ALENDRONATE SODIUM) [Concomitant]
  7. CALCIUM CHANNEL BLOCKERS [Concomitant]
  8. ADCIRCA (TADALAFIL) [Concomitant]

REACTIONS (2)
  - Cardiac failure congestive [None]
  - Oedema [None]
